FAERS Safety Report 8547744-8 (Version None)
Quarter: 2012Q3

REPORT INFORMATION
  Report Type: 
  Country: None (occurrence: None)
  Receive Date: 20120727
  Receipt Date: 20120216
  Transmission Date: 20120928
  Serious: Yes (Other)
  Sender: FDA-Public Use
  Company Number: US-ASTRAZENECA-2011SE72479

PATIENT
  Age: 65 Year
  Sex: Female

DRUGS (10)
  1. SEROQUEL [Suspect]
     Route: 048
  2. WARFARIN SODIUM [Concomitant]
  3. LEVOTHYROXINE SODIUM [Concomitant]
  4. NAMENDA [Concomitant]
  5. PAMOTRIGINE [Concomitant]
  6. ARICEPT [Concomitant]
  7. PRAVASTATIN [Concomitant]
  8. COMBIGAO [Concomitant]
     Dosage: 21% 5 %
  9. LITHIUM CARBONATE [Concomitant]
  10. CLONAZEPAM [Concomitant]

REACTIONS (4)
  - DEMENTIA ALZHEIMER'S TYPE [None]
  - DRUG DOSE OMISSION [None]
  - PNEUMONIA [None]
  - INSOMNIA [None]
